FAERS Safety Report 24135964 (Version 1)
Quarter: 2024Q3

REPORT INFORMATION
  Report Type: Spontaneous
  Country: US (occurrence: None)
  Receive Date: 20240724
  Receipt Date: 20240724
  Transmission Date: 20241016
  Serious: Yes (Hospitalization)
  Sender: Public
  Company Number: None

PATIENT
  Sex: Female

DRUGS (1)
  1. ENDARI [Suspect]
     Active Substance: GLUTAMINE
     Indication: Sickle cell disease
     Dosage: OTHER QUANTITY : 2 PACKETS (10 GM);?FREQUENCY : TWICE A DAY;?TAKE 2 PACKETS (10 GM) BY MOUTH TWICE D
     Route: 048
     Dates: start: 20240702

REACTIONS (1)
  - Hospitalisation [None]
